FAERS Safety Report 8543141-X (Version None)
Quarter: 2012Q3

REPORT INFORMATION
  Report Type: 
  Country: None (occurrence: None)
  Receive Date: 20120727
  Receipt Date: 20120419
  Transmission Date: 20120928
  Serious: No
  Sender: FDA-Public Use
  Company Number: US-MYLANLABS-2012S1008451

PATIENT
  Age: 54 Year
  Sex: Female

DRUGS (1)
  1. LEVOTHYROXINE SODIUM [Suspect]
     Indication: THYROID DISORDER
     Route: 048
     Dates: start: 20120413, end: 20120417

REACTIONS (3)
  - PRURITUS [None]
  - ARTHRALGIA [None]
  - MYALGIA [None]
